FAERS Safety Report 16835141 (Version 1)
Quarter: 2019Q3

REPORT INFORMATION
  Report Type: Spontaneous
  Country: US (occurrence: US)
  Receive Date: 20190920
  Receipt Date: 20190920
  Transmission Date: 20191005
  Serious: No
  Sender: FDA-Public Use
  Company Number: US-SA-2019SA258330

PATIENT
  Age: 55 Year
  Sex: Female

DRUGS (10)
  1. PAROXETINE HYDROCHLORIDE. [Concomitant]
     Active Substance: PAROXETINE HYDROCHLORIDE
  2. DOXEPIN [Concomitant]
     Active Substance: DOXEPIN
  3. CEPHALEXINE [Concomitant]
     Active Substance: CEPHALEXIN
  4. LEVOTHYROXINE. [Concomitant]
     Active Substance: LEVOTHYROXINE
  5. DUPIXENT [Suspect]
     Active Substance: DUPILUMAB
     Indication: DERMATITIS
     Dosage: 300 MG, QOW
     Route: 058
     Dates: start: 20180822
  6. BETAMETH DIPROPIONATE [Concomitant]
  7. AUGMENTED BETAMETHASONE DIPROPIONATE [Concomitant]
  8. ESTRADIOL. [Concomitant]
     Active Substance: ESTRADIOL
  9. METHYLPHENIDAT [Concomitant]
     Active Substance: METHYLPHENIDATE
  10. MUPIROCIN. [Concomitant]
     Active Substance: MUPIROCIN

REACTIONS (1)
  - Dry eye [Not Recovered/Not Resolved]
